FAERS Safety Report 18498897 (Version 1)
Quarter: 2020Q4

REPORT INFORMATION
  Report Type: Spontaneous
  Country: US (occurrence: US)
  Receive Date: 20201112
  Receipt Date: 20201112
  Transmission Date: 20210114
  Serious: No
  Sender: FDA-Public Use
  Company Number: US-TAKEDA-2020TUS047007

PATIENT
  Sex: Female
  Weight: 14.97 kg

DRUGS (5)
  1. ACETAMINOPHEN. [Concomitant]
     Active Substance: ACETAMINOPHEN
     Route: 065
  2. DIPHENHYDRAMINE. [Concomitant]
     Active Substance: DIPHENHYDRAMINE
  3. LMX4 [Concomitant]
     Active Substance: LIDOCAINE
  4. CUVITRU [Suspect]
     Active Substance: HUMAN IMMUNOGLOBULIN G
     Indication: HYPOGAMMAGLOBULINAEMIA
     Dosage: 4 GRAM, Q2WEEKS
     Route: 058
     Dates: start: 20200930
  5. EPINEPHRINE. [Concomitant]
     Active Substance: EPINEPHRINE
     Route: 065

REACTIONS (1)
  - Anxiety [Unknown]
